FAERS Safety Report 11826704 (Version 1)
Quarter: 2015Q4

REPORT INFORMATION
  Report Type: Spontaneous
  Country: DE (occurrence: DE)
  Receive Date: 20151211
  Receipt Date: 20151211
  Transmission Date: 20160305
  Serious: Yes (Other)
  Sender: FDA-Public Use
  Company Number: PHHY2015DE160363

PATIENT
  Sex: Male

DRUGS (1)
  1. GLIVEC [Suspect]
     Active Substance: IMATINIB MESYLATE
     Indication: ADENOCARCINOMA
     Dosage: UNK
     Route: 065

REACTIONS (6)
  - Metastases to lung [Unknown]
  - Blood brain barrier defect [Unknown]
  - Product use issue [Unknown]
  - Metastases to meninges [Unknown]
  - Therapeutic response unexpected [Unknown]
  - Cerebral haemorrhage [Unknown]
